FAERS Safety Report 20612792 (Version 1)
Quarter: 2022Q1

REPORT INFORMATION
  Report Type: Report from Study
  Country: US (occurrence: US)
  Receive Date: 20220318
  Receipt Date: 20220318
  Transmission Date: 20220423
  Serious: No
  Sender: FDA-Public Use
  Company Number: US-INCYTE CORPORATION-2022IN001334

PATIENT

DRUGS (30)
  1. JAKAFI [Suspect]
     Active Substance: RUXOLITINIB
     Indication: Thrombocytopenia
     Dosage: 20 MILLIGRAM, BID
     Route: 065
     Dates: start: 20200512, end: 20200623
  2. JAKAFI [Suspect]
     Active Substance: RUXOLITINIB
     Dosage: 20 MILLIGRAM, QD
     Route: 065
     Dates: start: 20200624, end: 20200721
  3. JAKAFI [Suspect]
     Active Substance: RUXOLITINIB
     Dosage: 20 MILLIGRAM, QOD
     Route: 065
     Dates: start: 20200721, end: 20200811
  4. JAKAFI [Suspect]
     Active Substance: RUXOLITINIB
     Dosage: 10 MILLIGRAM, QD
     Route: 065
     Dates: start: 20200812, end: 20200825
  5. JAKAFI [Suspect]
     Active Substance: RUXOLITINIB
     Dosage: 20 MILLIGRAM, QD
     Route: 065
     Dates: start: 20200826, end: 20200904
  6. JAKAFI [Suspect]
     Active Substance: RUXOLITINIB
     Dosage: 10 MILLIGRAM, QD
     Route: 065
     Dates: start: 20200912, end: 20201123
  7. JAKAFI [Suspect]
     Active Substance: RUXOLITINIB
     Dosage: 100 MILLIGRAM
     Route: 065
     Dates: start: 20201124, end: 20210106
  8. JAKAFI [Suspect]
     Active Substance: RUXOLITINIB
     Dosage: 20 MILLIGRAM, QD
     Route: 065
     Dates: start: 20210107, end: 20210406
  9. IRON [Concomitant]
     Active Substance: IRON
     Indication: Anaemia
     Dosage: 1 TABLET QD
     Route: 065
     Dates: start: 20120106
  10. IMITREX [Concomitant]
     Active Substance: SUMATRIPTAN SUCCINATE
     Indication: Migraine
     Dosage: 1 MILLIGRAM, QD
     Route: 065
     Dates: start: 2011
  11. ACETAMINOPHEN\HYDROCODONE [Concomitant]
     Active Substance: ACETAMINOPHEN\HYDROCODONE
     Indication: Back pain
     Dosage: 1 TABLET PRN
     Route: 065
     Dates: start: 2011
  12. ALPRAZOLAM [Concomitant]
     Active Substance: ALPRAZOLAM
     Indication: Anxiety
     Dosage: 0.5 MILLIGRAM, BID
     Route: 065
     Dates: start: 20120130
  13. HYDROXYUREA [Concomitant]
     Active Substance: HYDROXYUREA
     Indication: Essential thrombocythaemia
     Dosage: 500 MILLIGRAM
     Route: 065
     Dates: start: 20120911, end: 20180212
  14. ASPIRIN [Concomitant]
     Active Substance: ASPIRIN
     Indication: Essential thrombocythaemia
     Dosage: 81 MILLIGRAM, QD
     Route: 065
     Dates: start: 20160519
  15. HYDREA [Concomitant]
     Active Substance: HYDROXYUREA
     Indication: Thrombocytopenia
     Dosage: 500 MILLIGRAM, BID
     Route: 065
     Dates: start: 20200904, end: 20201001
  16. HYDREA [Concomitant]
     Active Substance: HYDROXYUREA
     Dosage: 500 MILLIGRAM
     Route: 065
     Dates: start: 20201002, end: 20201013
  17. HYDREA [Concomitant]
     Active Substance: HYDROXYUREA
     Dosage: 7500 MILLIGRAM
     Route: 065
     Dates: start: 20180213, end: 20180813
  18. HYDREA [Concomitant]
     Active Substance: HYDROXYUREA
     Dosage: 8000 MILLIGRAM
     Route: 065
     Dates: start: 20180814, end: 20181112
  19. HYDREA [Concomitant]
     Active Substance: HYDROXYUREA
     Dosage: 6500 MILLIGRAM
     Route: 065
     Dates: start: 20181113, end: 20190227
  20. HYDREA [Concomitant]
     Active Substance: HYDROXYUREA
     Dosage: 6000 MILLIGRAM
     Route: 065
     Dates: start: 20190228, end: 20190422
  21. HYDREA [Concomitant]
     Active Substance: HYDROXYUREA
     Dosage: 5500 MILLIGRAM
     Route: 065
     Dates: start: 20190423, end: 20200511
  22. HYDREA [Concomitant]
     Active Substance: HYDROXYUREA
     Dosage: 1000 MILLIGRAM, QD
     Route: 065
     Dates: start: 20201208, end: 20210107
  23. HYDREA [Concomitant]
     Active Substance: HYDROXYUREA
     Dosage: 500 MILLIGRAM, BID
     Route: 065
     Dates: start: 20210323, end: 20210419
  24. HYDREA [Concomitant]
     Active Substance: HYDROXYUREA
     Dosage: 500 MILLIGRAM, QD
     Route: 065
     Dates: start: 20210714, end: 20210723
  25. FOLIC ACID [Concomitant]
     Active Substance: FOLIC ACID
     Indication: Macrocytosis
     Dosage: 1 MILLIGRAM, QD
     Route: 065
     Dates: start: 20180514
  26. DANAZOL [Concomitant]
     Active Substance: DANAZOL
     Indication: Thrombocytopenia
     Dosage: 100 MILLIGRAM, QD
     Route: 065
     Dates: start: 20201124, end: 20201208
  27. DANAZOL [Concomitant]
     Active Substance: DANAZOL
     Dosage: 100 MILLIGRAM, QD
     Route: 065
     Dates: start: 20210114, end: 20210419
  28. PEGASYS [Concomitant]
     Active Substance: PEGINTERFERON ALFA-2A
     Indication: Thrombocytopenia
     Dosage: 90 MICROGRAM
     Route: 065
     Dates: start: 20210707, end: 20210816
  29. PEGASYS [Concomitant]
     Active Substance: PEGINTERFERON ALFA-2A
     Dosage: 180 MICROGRAM
     Route: 065
     Dates: start: 20211207, end: 20220113
  30. PEGASYS [Concomitant]
     Active Substance: PEGINTERFERON ALFA-2A
     Dosage: 90 MICROGRAM
     Route: 065
     Dates: start: 20220114

REACTIONS (8)
  - Fatigue [Recovering/Resolving]
  - Arthralgia [Recovering/Resolving]
  - Pain in extremity [Recovering/Resolving]
  - Night sweats [Recovering/Resolving]
  - Weight decreased [Recovering/Resolving]
  - Hepatosplenomegaly [Recovering/Resolving]
  - Anaemia [Recovered/Resolved with Sequelae]
  - Anaemia [Recovering/Resolving]

NARRATIVE: CASE EVENT DATE: 20200623
